FAERS Safety Report 23659964 (Version 1)
Quarter: 2024Q1

REPORT INFORMATION
  Report Type: Spontaneous
  Country: US (occurrence: US)
  Receive Date: 20240321
  Receipt Date: 20240321
  Transmission Date: 20240410
  Serious: No
  Sender: FDA-Public Use
  Company Number: US-SA-SAC20240319001371

PATIENT
  Sex: Female
  Weight: 78 kg

DRUGS (13)
  1. DUPIXENT [Suspect]
     Active Substance: DUPILUMAB
     Indication: Nasal polyps
     Dosage: 300 MG
     Route: 058
     Dates: start: 202401
  2. VITAMIN D3 [Concomitant]
     Active Substance: CHOLECALCIFEROL
  3. MAGNESIUM [Concomitant]
     Active Substance: MAGNESIUM
  4. ALLEGRA ALLERGY [Concomitant]
     Active Substance: FEXOFENADINE HYDROCHLORIDE
  5. FLAXSEED [Concomitant]
     Active Substance: FLAX SEED
  6. ALEVE [Concomitant]
     Active Substance: NAPROXEN SODIUM
  7. FISH OIL [Concomitant]
     Active Substance: FISH OIL
  8. CLONAZEPAM [Concomitant]
     Active Substance: CLONAZEPAM
  9. XHANCE [Concomitant]
     Active Substance: FLUTICASONE PROPIONATE
  10. VITAMINS NOS [Concomitant]
     Active Substance: VITAMINS
  11. BIOTIN [Concomitant]
     Active Substance: BIOTIN
  12. ATORVASTATIN CALCIUM [Concomitant]
     Active Substance: ATORVASTATIN CALCIUM
  13. COREG [Concomitant]
     Active Substance: CARVEDILOL

REACTIONS (1)
  - Injection site pain [Unknown]
